FAERS Safety Report 4443784-9 (Version None)
Quarter: 2004Q3

REPORT INFORMATION
  Report Type: 
  Country: None (occurrence: None)
  Receive Date: 20040729
  Receipt Date: 20040130
  Transmission Date: 20050211
  Serious: Yes (Death, Other)
  Sender: FDA-Public Use
  Company Number: USA-2004-0012723

PATIENT
  Age: 42 Year
  Sex: Female

DRUGS (1)
  1. MS CONTIN [Suspect]
     Indication: PAIN
     Dosage: 200 MG,

REACTIONS (2)
  - ACCIDENTAL OVERDOSE [None]
  - DRUG ABUSER [None]
